FAERS Safety Report 6697513-9 (Version None)
Quarter: 2010Q2

REPORT INFORMATION
  Report Type: 
  Country: None (occurrence: None)
  Receive Date: 20100426
  Receipt Date: 20100414
  Transmission Date: 20101027
  Serious: Yes (Other)
  Sender: FDA-Public Use
  Company Number: US-PFIZER INC-2010026896

PATIENT
  Age: 70 Year
  Sex: Male

DRUGS (1)
  1. XANAX [Suspect]
     Dosage: 3 MG, UNK

REACTIONS (3)
  - AMNESIA [None]
  - DRUG TOLERANCE DECREASED [None]
  - HYPERSOMNIA [None]
